APPROVED DRUG PRODUCT: MONO-LINYAH
Active Ingredient: ETHINYL ESTRADIOL; NORGESTIMATE
Strength: 0.035MG;0.25MG
Dosage Form/Route: TABLET;ORAL-28
Application: A090523 | Product #001 | TE Code: AB
Applicant: NOVAST LABORATORIES LTD
Approved: May 23, 2012 | RLD: No | RS: No | Type: RX